FAERS Safety Report 9306913 (Version 1)
Quarter: 2013Q2

REPORT INFORMATION
  Report Type: Spontaneous
  Country: AU (occurrence: AU)
  Receive Date: 20130523
  Receipt Date: 20130523
  Transmission Date: 20140414
  Serious: Yes (Death, Other)
  Sender: FDA-Public Use
  Company Number: PHHY2013AU051076

PATIENT
  Sex: Male

DRUGS (3)
  1. CICLOSPORIN [Suspect]
     Indication: IMMUNOSUPPRESSION
  2. AZATHIOPRINE [Concomitant]
     Indication: IMMUNOSUPPRESSION
  3. PREDNISOLONE [Concomitant]
     Indication: IMMUNOSUPPRESSION

REACTIONS (9)
  - Colitis ischaemic [Fatal]
  - Intestinal perforation [Fatal]
  - Haemolytic uraemic syndrome [Fatal]
  - Thrombotic microangiopathy [Fatal]
  - Anaemia [Fatal]
  - Thrombocytopenia [Fatal]
  - Haematuria [Fatal]
  - Renal failure [Fatal]
  - Lung transplant rejection [Unknown]
